FAERS Safety Report 17565366 (Version 1)
Quarter: 2020Q1

REPORT INFORMATION
  Report Type: Spontaneous
  Country: US (occurrence: US)
  Receive Date: 20200313
  Receipt Date: 20200313
  Transmission Date: 20200409
  Serious: Yes (Hospitalization)
  Sender: FDA-Public Use
  Company Number: None

PATIENT
  Age: 54 Year
  Sex: Male

DRUGS (10)
  1. IRON [Concomitant]
     Active Substance: IRON
  2. LANTUS [Concomitant]
     Active Substance: INSULIN GLARGINE
  3. NITROSTAT [Concomitant]
     Active Substance: NITROGLYCERIN
  4. SENNA LAXATIVE [Concomitant]
     Active Substance: SENNOSIDES
  5. ATORVASTATIN [Concomitant]
     Active Substance: ATORVASTATIN
  6. PLAVIX [Concomitant]
     Active Substance: CLOPIDOGREL BISULFATE
  7. OXCARBAZEPIN [Concomitant]
     Active Substance: OXCARBAZEPINE
  8. ALECENSA [Suspect]
     Active Substance: ALECTINIB HYDROCHLORIDE
     Indication: LUNG NEOPLASM MALIGNANT
     Route: 048
     Dates: start: 201707
  9. HUMALOG [Concomitant]
     Active Substance: INSULIN LISPRO
  10. HYDROMORPHON [Concomitant]
     Active Substance: HYDROMORPHONE

REACTIONS (1)
  - Hospitalisation [None]

NARRATIVE: CASE EVENT DATE: 20200227
